FAERS Safety Report 9252400 (Version 1)
Quarter: 2013Q1

REPORT INFORMATION
  Report Type: Spontaneous
  Country: US (occurrence: None)
  Receive Date: 20130305
  Receipt Date: 20130305
  Transmission Date: 20140127
  Serious: Yes (Hospitalization, Other)
  Sender: FDA-Public Use
  Company Number: 163-21880-12082656

PATIENT
  Age: 72 Year
  Sex: 0

DRUGS (1)
  1. REVLIMID [Suspect]
     Indication: MYELOFIBROSIS
     Dosage: 1 IN 1 D
     Route: 048
     Dates: start: 201207

REACTIONS (3)
  - Pancytopenia [None]
  - Infection [None]
  - Rash [None]
